FAERS Safety Report 7512799-6 (Version None)
Quarter: 2011Q2

REPORT INFORMATION
  Report Type: 
  Country: None (occurrence: None)
  Receive Date: 20110531
  Receipt Date: 20110523
  Transmission Date: 20111010
  Serious: Yes (Other)
  Sender: FDA-Public Use
  Company Number: B0721993A

PATIENT
  Age: 58 Year
  Sex: Female

DRUGS (1)
  1. PAXIL [Suspect]
     Indication: DEPRESSION
     Dosage: 10MG PER DAY
     Route: 048
     Dates: start: 20090801, end: 20110501

REACTIONS (3)
  - TREMOR [None]
  - MOVEMENT DISORDER [None]
  - PARKINSONISM [None]
